FAERS Safety Report 7293204-4 (Version None)
Quarter: 2011Q1

REPORT INFORMATION
  Report Type: 
  Country: None (occurrence: None)
  Receive Date: 20110215
  Receipt Date: 20110209
  Transmission Date: 20110831
  Serious: Yes (Other)
  Sender: FDA-Public Use
  Company Number: US-PFIZER INC-2010156755

PATIENT
  Sex: Female
  Weight: 73 kg

DRUGS (9)
  1. CELEXA [Concomitant]
     Indication: ANXIETY
  2. CLONAZEPAM [Concomitant]
     Indication: ANXIETY
  3. CHANTIX [Suspect]
     Dosage: 1 MG, 2X/DAY
     Dates: start: 20101201, end: 20110102
  4. GABAPENTIN [Concomitant]
     Dosage: UNK
  5. ALLEGRA [Concomitant]
     Dosage: UNK
  6. CHANTIX [Suspect]
     Indication: SMOKING CESSATION THERAPY
     Dosage: 0.5 MG, 1X/DAY
     Route: 048
     Dates: start: 20101116, end: 20100101
  7. CELEBREX [Concomitant]
     Indication: ARTHRITIS
  8. ADVAIR [Concomitant]
     Indication: ASTHMA
     Dosage: UNK
  9. CLONAZEPAM [Concomitant]
     Indication: DEPRESSION
     Dosage: UNK

REACTIONS (7)
  - SUICIDE ATTEMPT [None]
  - BURNOUT SYNDROME [None]
  - EMPHYSEMA [None]
  - URINARY TRACT INFECTION [None]
  - FEAR [None]
  - ASTHMA [None]
  - FEELING OF DESPAIR [None]
